FAERS Safety Report 15959799 (Version 1)
Quarter: 2019Q1

REPORT INFORMATION
  Report Type: Spontaneous
  Country: US (occurrence: US)
  Receive Date: 20190214
  Receipt Date: 20190214
  Transmission Date: 20190417
  Serious: No
  Sender: FDA-Public Use
  Company Number: US-ROCHE-2200239

PATIENT
  Age: 78 Year
  Sex: Female

DRUGS (1)
  1. ALECENSA [Suspect]
     Active Substance: ALECTINIB HYDROCHLORIDE
     Indication: LUNG NEOPLASM MALIGNANT
     Dosage: ONGOING: YES
     Route: 048
     Dates: start: 20180922

REACTIONS (5)
  - Exophthalmos [Unknown]
  - Generalised oedema [Unknown]
  - Muscular weakness [Unknown]
  - Fall [Unknown]
  - Eye swelling [Unknown]

NARRATIVE: CASE EVENT DATE: 20181012
